FAERS Safety Report 21782654 (Version 2)
Quarter: 2023Q1

REPORT INFORMATION
  Report Type: Report from Study
  Country: US (occurrence: US)
  Receive Date: 20221227
  Receipt Date: 20230215
  Transmission Date: 20230417
  Serious: No
  Sender: FDA-Public Use
  Company Number: US-ABBVIE-22K-163-4527647-00

PATIENT
  Sex: Female

DRUGS (1)
  1. HUMIRA [Suspect]
     Active Substance: ADALIMUMAB
     Indication: Rheumatoid arthritis
     Dosage: CITRATE FREE/EVENT OF URINARY TRACT INFECTION WAS STARTED ON AN UNKNOWN DATE IN 2022
     Route: 058
     Dates: start: 20220531

REACTIONS (8)
  - Hypotension [Not Recovered/Not Resolved]
  - Hypertension [Not Recovered/Not Resolved]
  - Urinary tract infection [Not Recovered/Not Resolved]
  - Urinary tract infection [Recovered/Resolved]
  - Back pain [Not Recovered/Not Resolved]
  - Stress [Not Recovered/Not Resolved]
  - Balance disorder [Unknown]
  - Fall [Unknown]
